FAERS Safety Report 14319050 (Version 1)
Quarter: 2017Q4

REPORT INFORMATION
  Report Type: Report from Study
  Country: US (occurrence: US)
  Receive Date: 20171222
  Receipt Date: 20171222
  Transmission Date: 20180321
  Serious: Yes (Hospitalization)
  Sender: FDA-Public Use
  Company Number: US-ACTELION-A-NJ2017-164570

PATIENT
  Age: 11 Month
  Sex: Female

DRUGS (8)
  1. TRACLEER [Suspect]
     Active Substance: BOSENTAN
     Indication: PULMONARY ARTERIAL HYPERTENSION
     Dosage: 10.24 MG, QD
     Route: 048
  2. CLONIDINE. [Concomitant]
     Active Substance: CLONIDINE
  3. ZINC. [Concomitant]
     Active Substance: ZINC
  4. IRON [Concomitant]
     Active Substance: IRON
  5. REVATIO [Concomitant]
     Active Substance: SILDENAFIL CITRATE
  6. FISH OIL [Concomitant]
     Active Substance: FISH OIL
  7. SYNAGIS [Concomitant]
     Active Substance: PALIVIZUMAB
  8. OMEPRAZOLE. [Concomitant]
     Active Substance: OMEPRAZOLE

REACTIONS (1)
  - Tracheostomy [Recovered/Resolved]
